FAERS Safety Report 15004792 (Version 2)
Quarter: 2019Q2

REPORT INFORMATION
  Report Type: Spontaneous
  Country: GB (occurrence: GB)
  Receive Date: 20180613
  Receipt Date: 20190517
  Transmission Date: 20190711
  Serious: Yes (Death, Other)
  Sender: FDA-Public Use
  Company Number: GB-AUROBINDO-AUR-APL-2018-030858

PATIENT

DRUGS (4)
  1. TRAMADOL. [Suspect]
     Active Substance: TRAMADOL
     Indication: POST-TRAUMATIC PAIN
     Dosage: UNK
     Route: 065
     Dates: start: 201701
  2. OXYCODONE [Suspect]
     Active Substance: OXYCODONE
     Indication: POST-TRAUMATIC PAIN
     Dosage: UNK
     Route: 065
     Dates: start: 201701
  3. ALCOHOL. [Suspect]
     Active Substance: ALCOHOL
     Indication: PRODUCT USED FOR UNKNOWN INDICATION
     Dosage: UNK
     Route: 065
  4. ZOPICLONE [Suspect]
     Active Substance: ZOPICLONE
     Indication: PRODUCT USED FOR UNKNOWN INDICATION
     Dosage: UNK
     Route: 065
     Dates: start: 201701

REACTIONS (5)
  - Overdose [Fatal]
  - Prescribed overdose [Not Recovered/Not Resolved]
  - Epistaxis [Fatal]
  - Loss of consciousness [Fatal]
  - Toxicity to various agents [Fatal]

NARRATIVE: CASE EVENT DATE: 201709
